FAERS Safety Report 9164727 (Version 1)
Quarter: 2013Q1

REPORT INFORMATION
  Report Type: Spontaneous
  Country: US (occurrence: None)
  Receive Date: 20130313
  Receipt Date: 20130313
  Transmission Date: 20140127
  Serious: Yes (Other)
  Sender: FDA-Public Use
  Company Number: None

PATIENT
  Age: 68 Year
  Sex: Male
  Weight: 88.45 kg

DRUGS (1)
  1. XIFAXAN (TABLETS) [Suspect]
     Indication: DIARRHOEA
     Route: 048
     Dates: start: 20130221, end: 20130228

REACTIONS (3)
  - Hypersensitivity [None]
  - Rash [None]
  - Pruritus [None]
